FAERS Safety Report 17512090 (Version 6)
Quarter: 2020Q2

REPORT INFORMATION
  Report Type: Report from Study
  Country: CA (occurrence: CA)
  Receive Date: 20200308
  Receipt Date: 20200628
  Transmission Date: 20200713
  Serious: Yes (Other)
  Sender: FDA-Public Use
  Company Number: CA-BIOGEN-2019BI00792726

PATIENT
  Sex: Female

DRUGS (2)
  1. TYSABRI [Suspect]
     Active Substance: NATALIZUMAB
     Indication: MULTIPLE SCLEROSIS
     Dosage: INFUSED OVER 1 HOUR
     Route: 042
     Dates: start: 20180205
  2. TYSABRI [Suspect]
     Active Substance: NATALIZUMAB
     Dosage: INFUSED OVER 1 HOUR
     Route: 042
     Dates: start: 20190205

REACTIONS (7)
  - Discomfort [Unknown]
  - Back pain [Unknown]
  - Post procedural contusion [Not Recovered/Not Resolved]
  - Nasopharyngitis [Recovered/Resolved]
  - Intraductal proliferative breast lesion [Recovered/Resolved]
  - Multiple allergies [Unknown]
  - Sinus congestion [Recovered/Resolved]
